FAERS Safety Report 20509168 (Version 1)
Quarter: 2022Q1

REPORT INFORMATION
  Report Type: Spontaneous
  Country: NL (occurrence: NL)
  Receive Date: 20220223
  Receipt Date: 20220223
  Transmission Date: 20220423
  Serious: Yes (Hospitalization, Other)
  Sender: FDA-Public Use
  Company Number: NL-BEIGENE USA INC-BGN-2022-001582

PATIENT

DRUGS (3)
  1. BRUKINSA [Suspect]
     Active Substance: ZANUBRUTINIB
     Indication: Marginal zone lymphoma
     Dosage: UNK
     Route: 048
     Dates: start: 2021
  2. BRUKINSA [Suspect]
     Active Substance: ZANUBRUTINIB
     Dosage: UNK
  3. SOTALOL [Concomitant]
     Active Substance: SOTALOL
     Indication: Ventricular tachycardia

REACTIONS (1)
  - Ventricular tachycardia [Recovering/Resolving]
